FAERS Safety Report 7730447-7 (Version None)
Quarter: 2011Q3

REPORT INFORMATION
  Report Type: 
  Country: None (occurrence: None)
  Receive Date: 20110906
  Receipt Date: 20110831
  Transmission Date: 20111222
  Serious: Yes (Death)
  Sender: FDA-Public Use
  Company Number: JP-ASTRAZENECA-2011SE52739

PATIENT
  Age: 77 Year
  Sex: Male

DRUGS (2)
  1. DEXTROSE [Concomitant]
  2. MEROPENEM [Suspect]
     Indication: ABSCESS INTESTINAL
     Route: 042
     Dates: start: 20110801

REACTIONS (2)
  - SKIN EXFOLIATION [None]
  - BLISTER [None]
